FAERS Safety Report 7376478-0 (Version None)
Quarter: 2011Q1

REPORT INFORMATION
  Report Type: 
  Country: None (occurrence: None)
  Receive Date: 20110325
  Receipt Date: 20110314
  Transmission Date: 20110831
  Serious: Yes (Hospitalization)
  Sender: FDA-Public Use
  Company Number: FR-CELGENEUS-056-C5013-10071928

PATIENT
  Sex: Female
  Weight: 57 kg

DRUGS (10)
  1. THALIDOMIDE [Suspect]
     Dosage: 200 MILLIGRAM
     Route: 048
     Dates: start: 20100818
  2. MELPHALAN [Suspect]
     Indication: MULTIPLE MYELOMA
     Dosage: 8 MILLIGRAM
     Route: 065
     Dates: start: 20100202
  3. LOVENOX [Concomitant]
     Indication: THROMBOSIS PROPHYLAXIS
     Dosage: 4000 IU (INTERNATIONAL UNIT)
     Route: 058
     Dates: start: 20100716, end: 20100801
  4. THALIDOMIDE [Suspect]
     Indication: MULTIPLE MYELOMA
     Dosage: 200 MILLIGRAM
     Route: 048
     Dates: start: 20100202
  5. PREDNISONE [Suspect]
     Indication: MULTIPLE MYELOMA
     Dosage: 110 MILLIGRAM
     Route: 065
     Dates: start: 20100202
  6. THALIDOMIDE [Suspect]
     Dosage: 200 MILLIGRAM
     Route: 048
     Dates: start: 20100609, end: 20100616
  7. MELPHALAN [Suspect]
     Dosage: 6 MILLIGRAM
     Route: 065
     Dates: start: 20100818
  8. PREDNISONE [Suspect]
     Dosage: 100 MILLIGRAM
     Route: 065
     Dates: start: 20100609, end: 20100612
  9. MELPHALAN [Suspect]
     Dosage: 6 MILLIGRAM
     Route: 065
     Dates: start: 20100609, end: 20100612
  10. PREDNISONE [Suspect]
     Dosage: 100 MILLIGRAM
     Route: 065
     Dates: start: 20100818

REACTIONS (1)
  - DECUBITUS ULCER [None]
